FAERS Safety Report 5572508-7 (Version None)
Quarter: 2007Q4

REPORT INFORMATION
  Report Type: 
  Country: None (occurrence: None)
  Receive Date: 20071222
  Receipt Date: 20071210
  Transmission Date: 20080405
  Serious: Yes (Other)
  Sender: FDA-Public Use
  Company Number: US-PFIZER INC-2007105973

PATIENT
  Sex: Male
  Weight: 127.3 kg

DRUGS (13)
  1. CHANTIX [Suspect]
     Indication: SMOKING CESSATION THERAPY
  2. PLAVIX [Concomitant]
  3. ALBUTEROL [Concomitant]
  4. LIPITOR [Concomitant]
  5. LISINOPRIL [Concomitant]
  6. ACETYLSALICYLIC ACID SRT [Concomitant]
  7. OXYCODONE HCL [Concomitant]
  8. TYLENOL [Concomitant]
  9. LASIX [Concomitant]
  10. SPIRIVA [Concomitant]
  11. SOFTENERS, EMOLLIENTS [Concomitant]
  12. VITAMINS [Concomitant]
  13. MAXIDEX [Concomitant]

REACTIONS (1)
  - LUNG NEOPLASM MALIGNANT [None]
